FAERS Safety Report 4496603-9 (Version None)
Quarter: 2004Q4

REPORT INFORMATION
  Report Type: 
  Country: None (occurrence: None)
  Receive Date: 20041109
  Receipt Date: 20041029
  Transmission Date: 20050328
  Serious: Yes (Hospitalization)
  Sender: FDA-Public Use
  Company Number: FR-NOVOPROD-240194

PATIENT
  Age: 56 Year
  Sex: Female
  Weight: 72 kg

DRUGS (1)
  1. NORDITROPIN SIMPLEXX [Suspect]
     Indication: GROWTH HORMONE DEFICIENCY
     Dosage: N/A
     Dates: start: 19760101

REACTIONS (5)
  - APPENDICITIS [None]
  - DIALYSIS [None]
  - HYPERTENSION [None]
  - INFLAMMATION [None]
  - RENAL FAILURE [None]
